FAERS Safety Report 5856312-8 (Version None)
Quarter: 2008Q3

REPORT INFORMATION
  Report Type: 
  Country: None (occurrence: None)
  Receive Date: 20080821
  Receipt Date: 20080821
  Transmission Date: 20090109
  Serious: Yes (Other)
  Sender: FDA-Public Use
  Company Number: None

PATIENT
  Age: 50 Year
  Sex: Female
  Weight: 56.246 kg

DRUGS (2)
  1. LUNESTA [Suspect]
     Indication: INSOMNIA
     Dosage: 3 MG AT HS PO  (DURATION: APPROX 2-3 MONTHS)
     Route: 048
  2. LUNESTA [Suspect]
     Indication: PAIN
     Dosage: 3 MG AT HS PO  (DURATION: APPROX 2-3 MONTHS)
     Route: 048

REACTIONS (10)
  - AGEUSIA [None]
  - BLOOD PRESSURE SYSTOLIC INCREASED [None]
  - DYSGEUSIA [None]
  - GLOSSODYNIA [None]
  - HEADACHE [None]
  - INSOMNIA [None]
  - MIDDLE INSOMNIA [None]
  - PAIN [None]
  - SWOLLEN TONGUE [None]
  - TONGUE DISORDER [None]
